FAERS Safety Report 12190104 (Version 3)
Quarter: 2016Q3

REPORT INFORMATION
  Report Type: Spontaneous
  Country: US (occurrence: US)
  Receive Date: 20160318
  Receipt Date: 20160901
  Transmission Date: 20161109
  Serious: No
  Sender: FDA-Public Use
  Company Number: US-BRISTOL-MYERS SQUIBB COMPANY-BMS-2016-020332

PATIENT
  Age: 93 Year
  Sex: Male
  Weight: 60.4 kg

DRUGS (8)
  1. DETROL [Concomitant]
     Active Substance: TOLTERODINE TARTRATE
     Indication: URINARY INCONTINENCE
     Dosage: 2 MG, QD
     Route: 048
  2. PROSCAR [Concomitant]
     Active Substance: FINASTERIDE
     Indication: ADVERSE EVENT
     Dosage: 5 MG, QD
     Route: 048
  3. ELIQUIS [Suspect]
     Active Substance: APIXABAN
     Indication: CEREBROVASCULAR ACCIDENT PROPHYLAXIS
     Dosage: 5 MG, BID
     Route: 048
     Dates: start: 20160308
  4. PRILOSEC [Concomitant]
     Active Substance: OMEPRAZOLE MAGNESIUM
     Indication: HIATUS HERNIA
     Dosage: UNK
     Route: 065
  5. FUROSEMIDE. [Concomitant]
     Active Substance: FUROSEMIDE
     Indication: POLYURIA
     Dosage: 5 MG, QD
     Route: 048
     Dates: start: 2015
  6. FLOMAX [Concomitant]
     Active Substance: TAMSULOSIN HYDROCHLORIDE
     Indication: ADVERSE EVENT
     Dosage: UNK
     Route: 065
  7. WARFARIN SODIUM. [Suspect]
     Active Substance: WARFARIN SODIUM
     Indication: ATRIAL FIBRILLATION
     Dosage: 26 MG, QWK
     Route: 048
  8. ALLOPURINOL. [Concomitant]
     Active Substance: ALLOPURINOL
     Indication: GOUT
     Dosage: UNK
     Route: 065

REACTIONS (2)
  - Rash macular [Not Recovered/Not Resolved]
  - Contraindicated product administered [Unknown]

NARRATIVE: CASE EVENT DATE: 20160311
